FAERS Safety Report 24145835 (Version 4)
Quarter: 2025Q1

REPORT INFORMATION
  Report Type: Spontaneous
  Country: US (occurrence: US)
  Receive Date: 20240729
  Receipt Date: 20250204
  Transmission Date: 20250409
  Serious: Yes (Other)
  Sender: CATALYST PHARMA
  Company Number: US-CATALYST PHARMACEUTICALS, INC-US-CATA-24-00765

PATIENT
  Sex: Female

DRUGS (7)
  1. FYCOMPA [Suspect]
     Active Substance: PERAMPANEL
     Indication: Temporal lobe epilepsy
     Dosage: 6 MG DAILY
     Route: 048
     Dates: start: 20191223
  2. FYCOMPA [Suspect]
     Active Substance: PERAMPANEL
     Dosage: ONE 8 MG TABLET EVERY DAY AT BED TIME
     Route: 048
     Dates: end: 2024
  3. FYCOMPA [Suspect]
     Active Substance: PERAMPANEL
     Dosage: ONE 8 MG TABLET EVERY DAY
     Route: 048
     Dates: start: 2024
  4. FYCOMPA [Suspect]
     Active Substance: PERAMPANEL
     Dosage: 6 MG EVERY NIGHT AT BEDTIME
     Route: 048
  5. FYCOMPA [Suspect]
     Active Substance: PERAMPANEL
     Route: 048
  6. FYCOMPA [Suspect]
     Active Substance: PERAMPANEL
     Route: 048
  7. XCOPRI [Concomitant]
     Active Substance: CENOBAMATE
     Indication: Epilepsy
     Route: 065

REACTIONS (6)
  - Epilepsy [Recovered/Resolved]
  - Nightmare [Unknown]
  - Amnesia [Not Recovered/Not Resolved]
  - Memory impairment [Unknown]
  - Confusional state [Not Recovered/Not Resolved]
  - Therapy interrupted [Unknown]

NARRATIVE: CASE EVENT DATE: 20240101
